FAERS Safety Report 9671683 (Version 2)
Quarter: 2013Q4

REPORT INFORMATION
  Report Type: Spontaneous
  Country: US (occurrence: US)
  Receive Date: 20131106
  Receipt Date: 20131118
  Transmission Date: 20140711
  Serious: Yes (Hospitalization)
  Sender: FDA-Public Use
  Company Number: PHHY2013US123195

PATIENT
  Age: 14 Year
  Sex: Female

DRUGS (3)
  1. BUPROPION [Suspect]
     Dosage: 9 G, UNK
  2. CITALOPRAM [Concomitant]
  3. HYDROXYZINE [Concomitant]

REACTIONS (6)
  - Metabolic acidosis [Recovered/Resolved]
  - Electrocardiogram QT prolonged [Recovered/Resolved]
  - Convulsion [Recovered/Resolved]
  - Hypotension [Recovered/Resolved]
  - Nodal rhythm [Recovered/Resolved]
  - Overdose [Recovered/Resolved]
